FAERS Safety Report 15857384 (Version 1)
Quarter: 2019Q1

REPORT INFORMATION
  Report Type: Spontaneous
  Country: HU (occurrence: HU)
  Receive Date: 20190123
  Receipt Date: 20190123
  Transmission Date: 20190417
  Serious: Yes (Other)
  Sender: FDA-Public Use
  Company Number: HU-GLAXOSMITHKLINE-HU2019006413

PATIENT
  Age: 23 Year
  Sex: Female

DRUGS (4)
  1. METHYLPREDNISOLONE. [Suspect]
     Active Substance: METHYLPREDNISOLONE
     Indication: HERPES SIMPLEX
     Dosage: UNK
     Route: 065
  2. ACICLOVIR [Suspect]
     Active Substance: ACYCLOVIR
     Indication: VARICELLA ZOSTER VIRUS INFECTION
     Dosage: 2250 MILLIGRAM DAILY; LATER, DOSE WAS CHANGED TO ORAL ACICLOVIR 200MG FIVE TIMES A DAY
     Route: 042
  3. ACICLOVIR [Suspect]
     Active Substance: ACYCLOVIR
     Indication: HERPES SIMPLEX
     Dosage: 200 MG, QD; 1000 MILLIGRAM DAILY
     Route: 048
  4. METHYLPREDNISOLONE. [Suspect]
     Active Substance: METHYLPREDNISOLONE
     Indication: VARICELLA ZOSTER VIRUS INFECTION
     Dosage: 72 MG
     Route: 048

REACTIONS (2)
  - Chorioretinitis [Not Recovered/Not Resolved]
  - Disease progression [Not Recovered/Not Resolved]
